FAERS Safety Report 6752204-0 (Version None)
Quarter: 2010Q2

REPORT INFORMATION
  Report Type: 
  Country: None (occurrence: None)
  Receive Date: 20100602
  Receipt Date: 20100525
  Transmission Date: 20101027
  Serious: Yes (Disabling)
  Sender: FDA-Public Use
  Company Number: GB-B.I. PHARMACEUTICALS,INC./RIDGEFIELD-2010-UK-00394UK

PATIENT
  Sex: Male

DRUGS (3)
  1. FLOMAX RELIEF [Suspect]
     Indication: BENIGN PROSTATIC HYPERPLASIA
     Dosage: 400 MCG
     Route: 048
     Dates: start: 20100420, end: 20100420
  2. FLOMAX RELIEF [Suspect]
     Indication: NOCTURIA
  3. GALANTAMINE MR CAPS [Concomitant]
     Indication: DEMENTIA ALZHEIMER'S TYPE
     Dosage: 1 DAILY.
     Route: 048

REACTIONS (8)
  - CHILLS [None]
  - CONFUSIONAL STATE [None]
  - DIARRHOEA [None]
  - DISORIENTATION [None]
  - HEAD DISCOMFORT [None]
  - PANIC REACTION [None]
  - RHINORRHOEA [None]
  - TINNITUS [None]
